FAERS Safety Report 11449933 (Version 1)
Quarter: 2015Q3

REPORT INFORMATION
  Report Type: Spontaneous
  Country: US (occurrence: US)
  Receive Date: 20150903
  Receipt Date: 20150903
  Transmission Date: 20151125
  Serious: Yes (Hospitalization)
  Sender: FDA-Public Use
  Company Number: US-ROCHE-1061242

PATIENT
  Sex: Male
  Weight: 90.35 kg

DRUGS (4)
  1. RIBAVIRIN. [Suspect]
     Active Substance: RIBAVIRIN
     Dosage: DIVIDED DOSES
     Route: 065
  2. TELAPREVIR [Suspect]
     Active Substance: TELAPREVIR
     Indication: CHRONIC HEPATITIS C
     Route: 065
     Dates: start: 20120418
  3. PEGASYS [Suspect]
     Active Substance: PEGINTERFERON ALFA-2A
     Indication: CHRONIC HEPATITIS C
     Route: 058
     Dates: start: 20120418
  4. RIBAVIRIN. [Suspect]
     Active Substance: RIBAVIRIN
     Indication: CHRONIC HEPATITIS C
     Dosage: DIVIDED DOSES
     Route: 065
     Dates: start: 20120418

REACTIONS (18)
  - Anorectal discomfort [Unknown]
  - Drug dose omission [Unknown]
  - Dysphonia [Unknown]
  - Acidosis [Unknown]
  - Fatigue [Unknown]
  - Anaemia [Unknown]
  - Headache [Recovered/Resolved]
  - Constipation [Unknown]
  - Dyspnoea [Unknown]
  - Gastric disorder [Unknown]
  - Paraesthesia [Unknown]
  - Nocturia [Unknown]
  - Feeling abnormal [Unknown]
  - Pruritus [Unknown]
  - Weight increased [Unknown]
  - Skin disorder [Unknown]
  - Malaise [Unknown]
  - Limb discomfort [Unknown]
